FAERS Safety Report 6993967-9 (Version None)
Quarter: 2010Q3

REPORT INFORMATION
  Report Type: 
  Country: None (occurrence: None)
  Receive Date: 20100917
  Receipt Date: 20070313
  Transmission Date: 20110219
  Serious: Yes (Hospitalization, Other)
  Sender: FDA-Public Use
  Company Number: US-ASTRAZENECA-2006UW25216

PATIENT
  Age: 16001 Day
  Sex: Male
  Weight: 107.5 kg

DRUGS (5)
  1. SEROQUEL [Suspect]
     Indication: SLEEP DISORDER
     Dosage: 25 TO 100 MG
     Route: 048
     Dates: start: 20040728
  2. SEROQUEL [Suspect]
     Indication: AGITATION
     Dosage: 25 TO 100 MG
     Route: 048
     Dates: start: 20040728
  3. LEXAPRO [Concomitant]
     Indication: ANXIETY
     Dates: start: 20040728
  4. LEXAPRO [Concomitant]
     Indication: AGITATION
     Dates: start: 20040728
  5. EFFEXOR [Concomitant]
     Dosage: 150 TO 300 MG
     Dates: start: 20040728

REACTIONS (4)
  - DIABETES MELLITUS [None]
  - GLUCOSE TOLERANCE IMPAIRED [None]
  - HYPERGLYCAEMIA [None]
  - TYPE 2 DIABETES MELLITUS [None]
